FAERS Safety Report 4638091-5 (Version None)
Quarter: 2005Q2

REPORT INFORMATION
  Report Type: 
  Country: None (occurrence: None)
  Receive Date: 20050415
  Receipt Date: 20050404
  Transmission Date: 20051028
  Serious: Yes (Other)
  Sender: FDA-Public Use
  Company Number: 2005056568

PATIENT
  Sex: Female
  Weight: 81.6475 kg

DRUGS (2)
  1. MEDROL [Suspect]
     Indication: DERMATITIS
     Dosage: 4 MG ORAL
     Route: 048
     Dates: start: 20040901
  2. BETA BLOCKING AGENTS (BETA BLOCKING AGENTS) [Concomitant]

REACTIONS (2)
  - ANXIETY [None]
  - SYNCOPE [None]
